FAERS Safety Report 17900046 (Version 1)
Quarter: 2020Q2

REPORT INFORMATION
  Report Type: Spontaneous
  Country: US (occurrence: US)
  Receive Date: 20200615
  Receipt Date: 20200615
  Transmission Date: 20200714
  Serious: Yes (Life-Threatening, Other)
  Sender: FDA-Public Use
  Company Number: None

PATIENT
  Age: 67 Year
  Sex: Female
  Weight: 56.7 kg

DRUGS (6)
  1. TUMERIC [Concomitant]
     Active Substance: HERBALS\TURMERIC
  2. TOPROMAX [Concomitant]
  3. NP THYROID [Suspect]
     Active Substance: LEVOTHYROXINE\LIOTHYRONINE
     Indication: HYPOTHYROIDISM
     Dosage: ?          QUANTITY:1 TABLET(S);?
     Route: 060
  4. VITAMIN D3 [Concomitant]
     Active Substance: CHOLECALCIFEROL
  5. PROBIOTIC [Concomitant]
     Active Substance: PROBIOTICS NOS
  6. SALMON OIL [Concomitant]
     Active Substance: FISH OIL

REACTIONS (3)
  - Heart rate irregular [None]
  - Atrial fibrillation [None]
  - Stress [None]

NARRATIVE: CASE EVENT DATE: 20191012
